FAERS Safety Report 25869935 (Version 1)
Quarter: 2025Q4

REPORT INFORMATION
  Report Type: Report from Study
  Country: SG (occurrence: SG)
  Receive Date: 20251001
  Receipt Date: 20251001
  Transmission Date: 20260117
  Serious: Yes (Hospitalization, Other)
  Sender: PHARMING GROUP
  Company Number: SG-PHARMING-PHASG2025001363

PATIENT

DRUGS (9)
  1. LENIOLISIB PHOSPHATE [Suspect]
     Active Substance: LENIOLISIB PHOSPHATE
     Indication: Activated PI3 kinase delta syndrome
     Dosage: 20 MILLIGRAM, BID
     Route: 048
     Dates: start: 20241219
  2. LENIOLISIB PHOSPHATE [Suspect]
     Active Substance: LENIOLISIB PHOSPHATE
     Dosage: 50 MILLIGRAM, QD (20 MG ONCE A DAY, 30 MG ONCE A DAY)
     Route: 048
     Dates: start: 20250623
  3. LENIOLISIB PHOSPHATE [Suspect]
     Active Substance: LENIOLISIB PHOSPHATE
     Dosage: 20 MILLIGRAM, BID
     Route: 048
  4. LENIOLISIB PHOSPHATE [Suspect]
     Active Substance: LENIOLISIB PHOSPHATE
     Dosage: 50 MILLIGRAM, QD (20 MG ONCE A DAY, 30 MG ONCE A DAY)
     Route: 048
     Dates: start: 20250915, end: 20250922
  5. LENIOLISIB PHOSPHATE [Suspect]
     Active Substance: LENIOLISIB PHOSPHATE
     Dosage: 20 MILLIGRAM, BID
     Route: 048
     Dates: start: 20250924
  6. LENIOLISIB PHOSPHATE [Suspect]
     Active Substance: LENIOLISIB PHOSPHATE
     Dosage: 20 MILLIGRAM, BID
     Route: 048
     Dates: start: 20250924
  7. HIZENTRA [Concomitant]
     Active Substance: HUMAN IMMUNOGLOBULIN G
     Indication: Infection
     Dosage: 2 GRAM, ONCE WEEKLY
     Route: 058
     Dates: start: 20230807
  8. AMOXICILLIN [Concomitant]
     Active Substance: AMOXICILLIN
     Indication: Infection prophylaxis
     Dosage: 170 MILLIGRAM, BID
     Route: 048
     Dates: start: 20241217
  9. LACTOBACILLUS REUTERI [Concomitant]
     Active Substance: LACTOBACILLUS REUTERI
     Indication: Antibiotic therapy
     Dosage: 1 DOSAGE FORM, BID
     Route: 048
     Dates: start: 20240530

REACTIONS (1)
  - Colitis [Not Recovered/Not Resolved]

NARRATIVE: CASE EVENT DATE: 20250922
